FAERS Safety Report 11740270 (Version 2)
Quarter: 2015Q4

REPORT INFORMATION
  Report Type: Spontaneous
  Country: US (occurrence: US)
  Receive Date: 20151110
  Receipt Date: 20151120
  Transmission Date: 20160304
  Serious: No
  Sender: FDA-Public Use
  Company Number: US-ELI_LILLY_AND_COMPANY-US201112001641

PATIENT
  Age: 60 Year
  Sex: Female
  Weight: 181 kg

DRUGS (3)
  1. FORTEO [Suspect]
     Active Substance: TERIPARATIDE
     Dosage: 20 UG, QD
  2. FORTEO [Suspect]
     Active Substance: TERIPARATIDE
     Dosage: 20 UG, QD
  3. FORTEO [Suspect]
     Active Substance: TERIPARATIDE
     Indication: OSTEOPOROSIS
     Dosage: 20 UG, QD
     Dates: start: 201106

REACTIONS (15)
  - Eye disorder [Unknown]
  - Tibia fracture [Unknown]
  - Fall [Unknown]
  - Arthralgia [Unknown]
  - Bone pain [Unknown]
  - Rib fracture [Unknown]
  - Arthropathy [Unknown]
  - Musculoskeletal stiffness [Unknown]
  - Foot fracture [Unknown]
  - Gait disturbance [Unknown]
  - Feeling abnormal [Unknown]
  - Pain [Not Recovered/Not Resolved]
  - Pain in extremity [Unknown]
  - Dysstasia [Unknown]
  - Mobility decreased [Unknown]

NARRATIVE: CASE EVENT DATE: 201108
